FAERS Safety Report 13070130 (Version 2)
Quarter: 2017Q1

REPORT INFORMATION
  Report Type: Spontaneous
  Country: US (occurrence: US)
  Receive Date: 20161228
  Receipt Date: 20170120
  Transmission Date: 20170428
  Serious: Yes (Death, Hospitalization)
  Sender: FDA-Public Use
  Company Number: US-ABBVIE-16P-163-1823590-00

PATIENT
  Sex: Male

DRUGS (1)
  1. LUPRON DEPOT [Suspect]
     Active Substance: LEUPROLIDE ACETATE
     Indication: PROSTATE CANCER
     Route: 030
     Dates: start: 20131218

REACTIONS (12)
  - Pain in extremity [Unknown]
  - Gastrointestinal pain [Unknown]
  - General physical health deterioration [Not Recovered/Not Resolved]
  - Prostate cancer [Fatal]
  - Decreased appetite [Unknown]
  - Emotional distress [Unknown]
  - Discomfort [Unknown]
  - Diarrhoea [Unknown]
  - Pain [Unknown]
  - Arthralgia [Unknown]
  - Peripheral swelling [Unknown]
  - Insomnia [Unknown]

NARRATIVE: CASE EVENT DATE: 20131218
